FAERS Safety Report 19481234 (Version 2)
Quarter: 2022Q2

REPORT INFORMATION
  Report Type: Spontaneous
  Country: FR (occurrence: FR)
  Receive Date: 20210701
  Receipt Date: 20220524
  Transmission Date: 20220721
  Serious: Yes (Hospitalization)
  Sender: FDA-Public Use
  Company Number: FR-SUN PHARMACEUTICAL INDUSTRIES LTD-2021RR-302689

PATIENT
  Age: 39 Year
  Sex: Male
  Weight: 70 kg

DRUGS (3)
  1. QUETIAPINE [Suspect]
     Active Substance: QUETIAPINE
     Indication: Post-traumatic stress disorder
     Dosage: 300 MILLIGRAM, DAILY
     Route: 048
  2. LOXAPINE [Suspect]
     Active Substance: LOXAPINE
     Indication: Post-traumatic stress disorder
     Dosage: 50 MILLIGRAM, DAILY
     Route: 048
     Dates: end: 202105
  3. DAPAGLIFLOZIN [Suspect]
     Active Substance: DAPAGLIFLOZIN
     Indication: Diabetes mellitus
     Dosage: 20 MILLIGRAM, DAILY
     Route: 065
     Dates: start: 202012, end: 20210603

REACTIONS (1)
  - Diabetic ketoacidosis [Recovering/Resolving]

NARRATIVE: CASE EVENT DATE: 20210505
